FAERS Safety Report 5965079-4 (Version None)
Quarter: 2008Q4

REPORT INFORMATION
  Report Type: 
  Country: None (occurrence: None)
  Receive Date: 20081125
  Receipt Date: 20081117
  Transmission Date: 20090506
  Serious: Yes (Hospitalization, Other)
  Sender: FDA-Public Use
  Company Number: PHHY2008FR28836

PATIENT
  Sex: Female

DRUGS (7)
  1. VOLTAREN [Suspect]
     Indication: BACK PAIN
     Dosage: 75 MG UNK
     Route: 048
     Dates: start: 20070919, end: 20071003
  2. RABEPRAZOLE SODIUM [Concomitant]
     Dosage: UNK
     Route: 048
     Dates: start: 20070919, end: 20071003
  3. DAFALGAN [Concomitant]
     Indication: BACK PAIN
     Dosage: 6 DF QD
     Route: 048
     Dates: start: 20070919, end: 20071003
  4. GLUCOPHAGE [Concomitant]
     Dosage: 1000 MG THRICE DAILY
  5. ACARBOSE [Concomitant]
     Dosage: 100 MG THRICE DAILY
  6. PLAVIX [Concomitant]
     Dosage: 1 DF/DAY
  7. AMARYL [Concomitant]
     Dosage: 8 MG/DAY

REACTIONS (10)
  - ABDOMINAL PAIN [None]
  - ANOREXIA [None]
  - ENDOSCOPY [None]
  - GASTRIC ULCER HAEMORRHAGE [None]
  - HAEMATEMESIS [None]
  - HAEMOGLOBIN DECREASED [None]
  - MELAENA [None]
  - POLYURIA [None]
  - RENAL IMPAIRMENT [None]
  - URINARY TRACT INFECTION [None]
